FAERS Safety Report 21979193 (Version 1)
Quarter: 2023Q1

REPORT INFORMATION
  Report Type: Spontaneous
  Country: US (occurrence: None)
  Receive Date: 20230209
  Receipt Date: 20230209
  Transmission Date: 20230417
  Serious: Yes (Other)
  Sender: FDA-Public Use
  Company Number: None

PATIENT
  Age: 41 Year
  Sex: Female

DRUGS (1)
  1. BUPRENORPHINE\NALOXONE [Suspect]
     Active Substance: BUPRENORPHINE\NALOXONE
     Indication: Drug dependence
     Dosage: FREQUENCY : DAILY;?
     Route: 002
     Dates: start: 20220418

REACTIONS (3)
  - Headache [None]
  - Loss of personal independence in daily activities [None]
  - Impaired work ability [None]

NARRATIVE: CASE EVENT DATE: 20230126
